FAERS Safety Report 7830493-9 (Version None)
Quarter: 2011Q4

REPORT INFORMATION
  Report Type: 
  Country: None (occurrence: None)
  Receive Date: 20111021
  Receipt Date: 20111018
  Transmission Date: 20120403
  Serious: Yes (Other)
  Sender: FDA-Public Use
  Company Number: US-PFIZER INC-2011251013

PATIENT
  Sex: Male
  Weight: 127 kg

DRUGS (5)
  1. LYRICA [Suspect]
     Indication: NEUROPATHY PERIPHERAL
     Dosage: UNK
     Dates: start: 20110201, end: 20111001
  2. ALLOPURINOL [Concomitant]
     Indication: GOUT
     Dosage: UNK
  3. COLCHICINE [Concomitant]
     Indication: GOUT
     Dosage: UNK
  4. SULCONAZOLE [Concomitant]
     Indication: COCCIDIOIDOMYCOSIS
     Dosage: UNK
  5. WARFARIN SODIUM [Concomitant]
     Dosage: UNK

REACTIONS (4)
  - PAIN IN EXTREMITY [None]
  - COUGH [None]
  - UPPER RESPIRATORY TRACT CONGESTION [None]
  - CHOKING [None]
